FAERS Safety Report 15798763 (Version 1)
Quarter: 2019Q1

REPORT INFORMATION
  Report Type: Spontaneous
  Country: CN (occurrence: CN)
  Receive Date: 20190108
  Receipt Date: 20190108
  Transmission Date: 20190417
  Serious: Yes (Disabling)
  Sender: FDA-Public Use
  Company Number: CN-BAXTER-2019BAX000049

PATIENT
  Age: 39 Year
  Sex: Male
  Weight: 60 kg

DRUGS (5)
  1. 20% MANNITOL INJECTION [Suspect]
     Active Substance: MANNITOL
     Indication: SCIATICA
     Route: 041
     Dates: start: 20180929, end: 20181001
  2. 20% MANNITOL INJECTION [Suspect]
     Active Substance: MANNITOL
     Indication: INTERVERTEBRAL DISC PROTRUSION
  3. SODIUM CHLORIDE. [Suspect]
     Active Substance: SODIUM CHLORIDE
     Indication: MEDICATION DILUTION
     Route: 041
     Dates: start: 20180929, end: 20181010
  4. CHUANQING [Suspect]
     Active Substance: LIGUSTRAZINE
     Indication: SCIATICA
     Route: 041
     Dates: start: 20180929, end: 20181010
  5. TETRANDRINE. [Suspect]
     Active Substance: TETRANDRINE
     Indication: PAIN MANAGEMENT
     Dosage: 2 TABLETS (20 MG EACH TABLET) PER TIME, 3 TIMES A DAY
     Route: 048
     Dates: start: 20180929, end: 20181004

REACTIONS (3)
  - Hepatic function abnormal [Recovering/Resolving]
  - Asthenia [Recovering/Resolving]
  - Decreased appetite [Recovering/Resolving]

NARRATIVE: CASE EVENT DATE: 20181011
